FAERS Safety Report 25173157 (Version 3)
Quarter: 2025Q2

REPORT INFORMATION
  Report Type: Report from Study
  Country: US (occurrence: US)
  Receive Date: 20250408
  Receipt Date: 20250625
  Transmission Date: 20250716
  Serious: Yes (Other)
  Sender: BAYER HEALTHCARE PHARMACEUTICALS INC.
  Company Number: US-BAYER-2025A033296

PATIENT
  Age: 69 Year
  Sex: Female

DRUGS (3)
  1. STIVARGA [Suspect]
     Active Substance: REGORAFENIB MONOHYDRATE
     Indication: Colon cancer
     Dosage: 160 MG, QD (FOR 21 DAYS ON, 7 DAYS OF)
     Route: 048
  2. STIVARGA [Suspect]
     Active Substance: REGORAFENIB MONOHYDRATE
     Indication: Colon cancer
     Dosage: 120 MG, QD
     Route: 048
  3. STIVARGA [Suspect]
     Active Substance: REGORAFENIB MONOHYDRATE
     Indication: Colon cancer
     Dosage: 40 MG, QD,  FOR 21 DAYS, THEN 7 DAYS OF
     Route: 048

REACTIONS (17)
  - Neoplasm malignant [None]
  - Ascites [None]
  - Neuropathy peripheral [Not Recovered/Not Resolved]
  - Peripheral swelling [Recovered/Resolved]
  - Gait inability [Recovered/Resolved]
  - Palmar-plantar erythrodysaesthesia syndrome [Recovered/Resolved]
  - Dry skin [Unknown]
  - Sensitive skin [Recovering/Resolving]
  - Tenderness [Unknown]
  - Blister [Recovering/Resolving]
  - Pain [Recovering/Resolving]
  - Fatigue [Recovering/Resolving]
  - Secretion discharge [Recovering/Resolving]
  - Rash erythematous [Not Recovered/Not Resolved]
  - Poor quality sleep [Not Recovered/Not Resolved]
  - Anxiety [Not Recovered/Not Resolved]
  - Blister [None]
